FAERS Safety Report 19787785 (Version 1)
Quarter: 2021Q3

REPORT INFORMATION
  Report Type: Spontaneous
  Country: US (occurrence: US)
  Receive Date: 20210903
  Receipt Date: 20210903
  Transmission Date: 20211014
  Serious: No
  Sender: FDA-Public Use
  Company Number: US-BAUSCH-BL-2021-026480

PATIENT
  Age: 46 Year
  Sex: Female

DRUGS (2)
  1. APRISO [Suspect]
     Active Substance: MESALAMINE
     Indication: CROHN^S DISEASE
     Route: 048
     Dates: end: 20210726
  2. APRISO [Suspect]
     Active Substance: MESALAMINE
     Indication: OFF LABEL USE
     Dosage: RE?STARTED
     Route: 048
     Dates: start: 20210727

REACTIONS (3)
  - Product quality issue [Unknown]
  - Off label use [Unknown]
  - Urticaria [Not Recovered/Not Resolved]

NARRATIVE: CASE EVENT DATE: 202107
